FAERS Safety Report 12788873 (Version 2)
Quarter: 2017Q2

REPORT INFORMATION
  Report Type: Spontaneous
  Country: CO (occurrence: CO)
  Receive Date: 20160928
  Receipt Date: 20170404
  Transmission Date: 20170830
  Serious: Yes (Other)
  Sender: FDA-Public Use
  Company Number: CO-BAYER-2016-187688

PATIENT

DRUGS (1)
  1. ULTRAVIST? 300 [Suspect]
     Active Substance: IOPROMIDE
     Indication: COMPUTERISED TOMOGRAM ABDOMEN
     Dosage: UNK UNK, ONCE
     Dates: start: 20120130, end: 20120130

REACTIONS (1)
  - Haematemesis [Recovered/Resolved]

NARRATIVE: CASE EVENT DATE: 20120130
